FAERS Safety Report 8273195-X (Version None)
Quarter: 2012Q2

REPORT INFORMATION
  Report Type: 
  Country: None (occurrence: None)
  Receive Date: 20120411
  Receipt Date: 20120403
  Transmission Date: 20120825
  Serious: Yes (Hospitalization)
  Sender: FDA-Public Use
  Company Number: IT-JNJFOC-20120402366

PATIENT
  Sex: Male

DRUGS (1)
  1. HALDOL [Suspect]
     Indication: PSYCHOTIC DISORDER
     Route: 030
     Dates: start: 20120327, end: 20120327

REACTIONS (4)
  - AKATHISIA [None]
  - INSOMNIA [None]
  - HYPERTONIA [None]
  - BRADYKINESIA [None]
